FAERS Safety Report 8441137 (Version 6)
Quarter: 2013Q2

REPORT INFORMATION
  Report Type: Spontaneous
  Country: US (occurrence: US)
  Receive Date: 20120305
  Receipt Date: 20130410
  Transmission Date: 20140414
  Serious: Yes (Hospitalization, Other)
  Sender: FDA-Public Use
  Company Number: US-MERCK-1203USA00205

PATIENT
  Sex: Female

DRUGS (3)
  1. FOSAMAX [Suspect]
     Indication: OSTEOPOROSIS
     Dosage: 10 MG, UNK
     Route: 048
     Dates: start: 199911, end: 200601
  2. FOSAMAX [Suspect]
     Dosage: 70 MG, UNK
     Route: 048
     Dates: start: 199911, end: 200601
  3. FOSAMAX PLUS D [Suspect]
     Indication: OSTEOPOROSIS
     Dosage: 70 MG, UNK
     Route: 048
     Dates: start: 200601, end: 200701

REACTIONS (38)
  - Femur fracture [Unknown]
  - Intramedullary rod insertion [Unknown]
  - Open reduction of fracture [Recovered/Resolved]
  - Clavicle fracture [Unknown]
  - Fracture delayed union [Recovered/Resolved]
  - Joint manipulation [Unknown]
  - Medical device removal [Unknown]
  - Joint manipulation [Unknown]
  - Unevaluable event [Unknown]
  - Hypokalaemia [Recovering/Resolving]
  - Pyelonephritis acute [Recovering/Resolving]
  - Dehydration [Recovering/Resolving]
  - Surgery [Unknown]
  - Vertebroplasty [Unknown]
  - Thoracic vertebral fracture [Unknown]
  - Road traffic accident [Unknown]
  - Road traffic accident [Unknown]
  - Hypertension [Unknown]
  - Rheumatoid arthritis [Unknown]
  - Hypercholesterolaemia [Unknown]
  - Asthma [Unknown]
  - Clavicle fracture [Recovered/Resolved]
  - Urinary tract infection [Unknown]
  - Osteoarthritis [Unknown]
  - Fibromyalgia [Unknown]
  - Rotator cuff syndrome [Unknown]
  - Periarthritis [Unknown]
  - Periarthritis [Unknown]
  - Device failure [Unknown]
  - Device intolerance [Unknown]
  - Medical device removal [Unknown]
  - Periarthritis [Unknown]
  - Bursitis [Unknown]
  - Haemoglobin decreased [Unknown]
  - Drug ineffective [Unknown]
  - Arthralgia [Unknown]
  - Gastrooesophageal reflux disease [Unknown]
  - Back pain [Not Recovered/Not Resolved]
